FAERS Safety Report 5107605-3 (Version None)
Quarter: 2006Q3

REPORT INFORMATION
  Report Type: 
  Country: None (occurrence: None)
  Receive Date: 20060913
  Receipt Date: 20060913
  Transmission Date: 20061208
  Serious: No
  Sender: FDA-Public Use
  Company Number: None

PATIENT
  Sex: Male
  Weight: 75 kg

DRUGS (3)
  1. FLUOROURACIL [Suspect]
     Dosage: 6749 MG
  2. CISPLATIN [Suspect]
     Dosage: 111 MG
  3. EPIRUBICIN [Suspect]
     Dosage: 93 MG

REACTIONS (1)
  - NEUTROPHIL COUNT DECREASED [None]
